FAERS Safety Report 16217372 (Version 5)
Quarter: 2019Q3

REPORT INFORMATION
  Report Type: Spontaneous
  Country: US (occurrence: US)
  Receive Date: 20190419
  Receipt Date: 20190902
  Transmission Date: 20191004
  Serious: Yes (Other)
  Sender: FDA-Public Use
  Company Number: US-PFIZER INC-2019162293

PATIENT
  Age: 41 Year
  Sex: Male

DRUGS (1)
  1. XELJANZ [Suspect]
     Active Substance: TOFACITINIB CITRATE
     Indication: COLITIS ULCERATIVE
     Dosage: 10 MG, 2X/DAY
     Dates: start: 20180918

REACTIONS (8)
  - Flatulence [Unknown]
  - Rash [Unknown]
  - Haematochezia [Recovered/Resolved]
  - Abdominal pain [Unknown]
  - Dyschezia [Unknown]
  - Pain [Unknown]
  - Abdominal distension [Unknown]
  - Rash papular [Unknown]
